FAERS Safety Report 5084702-2 (Version None)
Quarter: 2006Q3

REPORT INFORMATION
  Report Type: 
  Country: None (occurrence: None)
  Receive Date: 20060814
  Receipt Date: 20060804
  Transmission Date: 20061208
  Serious: Yes (Other)
  Sender: FDA-Public Use
  Company Number: DEWYE516504AUG06

PATIENT
  Sex: Female

DRUGS (1)
  1. TREVILOR RETARD (VENLAFAXINE HYDROCHLORIDE, CAPSULE,  EXTENDED RELEASE [Suspect]
     Dosage: SEE IMAGE

REACTIONS (8)
  - AGITATION [None]
  - ANXIETY [None]
  - FEELING ABNORMAL [None]
  - FOOD POISONING [None]
  - MUCOSAL DRYNESS [None]
  - NAUSEA [None]
  - PANIC ATTACK [None]
  - PUPIL FIXED [None]
